FAERS Safety Report 8056001-8 (Version None)
Quarter: 2011Q4

REPORT INFORMATION
  Report Type: 
  Country: None (occurrence: None)
  Receive Date: 20111216
  Receipt Date: 20110303
  Transmission Date: 20120403
  Serious: Yes (Other)
  Sender: FDA-Public Use
  Company Number: 265317USA

PATIENT
  Age: 33 Year
  Sex: Female
  Weight: 70.7611 kg

DRUGS (3)
  1. LAMOTRIGINE [Concomitant]
  2. PARAGARD T 380A [Suspect]
     Indication: CONTRACEPTION
     Dosage: I.U.
     Dates: start: 20090129, end: 20110125
  3. ESCITALOPRAM OXALATE [Concomitant]

REACTIONS (3)
  - ABORTION SPONTANEOUS COMPLETE [None]
  - UTERINE HAEMORRHAGE [None]
  - DRUG INEFFECTIVE [None]
